FAERS Safety Report 9735441 (Version 2)
Quarter: 2015Q3

REPORT INFORMATION
  Report Type: Spontaneous
  Country: US (occurrence: US)
  Receive Date: 20131206
  Receipt Date: 20150804
  Transmission Date: 20151125
  Serious: No
  Sender: FDA-Public Use
  Company Number: US-GILEAD-2009-0022844

PATIENT
  Age: 55 Year
  Sex: Female

DRUGS (6)
  1. ACIPHEX [Concomitant]
     Active Substance: RABEPRAZOLE SODIUM
  2. URSO [Concomitant]
     Active Substance: URSODIOL
  3. INDERAL [Concomitant]
     Active Substance: PROPRANOLOL HYDROCHLORIDE
  4. LASIX [Concomitant]
     Active Substance: FUROSEMIDE
  5. SPIRONOLACTONE. [Concomitant]
     Active Substance: SPIRONOLACTONE
  6. LETAIRIS [Suspect]
     Active Substance: AMBRISENTAN
     Indication: PULMONARY ARTERIAL HYPERTENSION
     Route: 048
     Dates: start: 20090413

REACTIONS (2)
  - Dyspnoea [Unknown]
  - Oedema peripheral [Unknown]
